FAERS Safety Report 7011670-6 (Version None)
Quarter: 2010Q3

REPORT INFORMATION
  Report Type: 
  Country: None (occurrence: None)
  Receive Date: 20100923
  Receipt Date: 20090608
  Transmission Date: 20110219
  Serious: No
  Sender: FDA-Public Use
  Company Number: US-WYE-H09093609

PATIENT
  Sex: Female

DRUGS (4)
  1. PREMARIN [Suspect]
     Indication: VULVOVAGINAL DRYNESS
     Route: 065
     Dates: start: 20071001
  2. AMLODIPINE [Concomitant]
  3. CEPHALEXIN [Concomitant]
  4. ALENDRONATE SODIUM [Concomitant]

REACTIONS (2)
  - BETA HAEMOLYTIC STREPTOCOCCAL INFECTION [None]
  - VAGINAL INFECTION [None]
